FAERS Safety Report 19637016 (Version 1)
Quarter: 2021Q3

REPORT INFORMATION
  Report Type: Other
  Country: CN (occurrence: CN)
  Receive Date: 20210729
  Receipt Date: 20210729
  Transmission Date: 20211014
  Serious: Yes (Other)
  Sender: FDA-Public Use
  Company Number: CN-GE HEALTHCARE LIFE SCIENCES-2021CSU003705

PATIENT

DRUGS (2)
  1. OMNIPAQUE [Suspect]
     Active Substance: IOHEXOL
     Indication: IMAGING PROCEDURE
     Dosage: 30 GM, SINGLE
     Route: 042
     Dates: start: 20210712, end: 20210712
  2. OMNIPAQUE [Suspect]
     Active Substance: IOHEXOL
     Indication: CHRONIC OBSTRUCTIVE PULMONARY DISEASE

REACTIONS (5)
  - Wheezing [Recovering/Resolving]
  - Breath sounds abnormal [Recovering/Resolving]
  - Tachypnoea [Recovering/Resolving]
  - Cyanosis [Recovering/Resolving]
  - Heart rate increased [Recovering/Resolving]

NARRATIVE: CASE EVENT DATE: 20210712
